FAERS Safety Report 8353762-5 (Version None)
Quarter: 2012Q2

REPORT INFORMATION
  Report Type: 
  Country: None (occurrence: None)
  Receive Date: 20120511
  Receipt Date: 20111021
  Transmission Date: 20120825
  Serious: No
  Sender: FDA-Public Use
  Company Number: US-GLAXOSMITHKLINE-A0950518A

PATIENT
  Sex: Female

DRUGS (9)
  1. VITAMIN D [Concomitant]
     Route: 048
  2. FLONASE [Concomitant]
     Route: 045
  3. ZANTAC [Concomitant]
     Route: 048
  4. XELODA [Suspect]
     Indication: PRODUCT USED FOR UNKNOWN INDICATION
     Dosage: 150MG UNKNOWN
     Route: 048
  5. LORAZEPAM [Concomitant]
     Route: 048
  6. IMODIUM A-D [Concomitant]
  7. TYKERB [Suspect]
     Indication: PRODUCT USED FOR UNKNOWN INDICATION
     Dosage: 1250MG PER DAY
     Route: 048
  8. XELODA [Suspect]
     Dosage: 500MG UNKNOWN
     Route: 048
  9. LISINOPRIL [Concomitant]
     Route: 048

REACTIONS (1)
  - DIARRHOEA [None]
